FAERS Safety Report 16894567 (Version 5)
Quarter: 2020Q2

REPORT INFORMATION
  Report Type: Spontaneous
  Country: US (occurrence: US)
  Receive Date: 20191008
  Receipt Date: 20200514
  Transmission Date: 20200713
  Serious: No
  Sender: FDA-Public Use
  Company Number: US-PFIZER INC-2019432601

PATIENT
  Age: 57 Year
  Sex: Female
  Weight: 103 kg

DRUGS (3)
  1. LYRICA [Suspect]
     Active Substance: PREGABALIN
     Dosage: 100 MG
     Dates: start: 202005
  2. LYRICA [Suspect]
     Active Substance: PREGABALIN
     Indication: NEUROPATHY PERIPHERAL
     Dosage: 100 MG, 2X/DAY
  3. LYRICA [Suspect]
     Active Substance: PREGABALIN
     Dosage: 100 MG, 2X/DAY (EVERY MORNING AND AT NIGHT)
     Route: 048
     Dates: start: 2011

REACTIONS (8)
  - Pain [Not Recovered/Not Resolved]
  - Pain in extremity [Unknown]
  - Mania [Unknown]
  - Withdrawal syndrome [Unknown]
  - Insomnia [Unknown]
  - Weight increased [Unknown]
  - Rash macular [Unknown]
  - Intentional product misuse [Unknown]

NARRATIVE: CASE EVENT DATE: 202005
